FAERS Safety Report 8126510-1 (Version None)
Quarter: 2012Q1

REPORT INFORMATION
  Report Type: 
  Country: None (occurrence: None)
  Receive Date: 20120209
  Receipt Date: 20120131
  Transmission Date: 20120608
  Serious: Yes (Hospitalization)
  Sender: FDA-Public Use
  Company Number: US-ASTRAZENECA-2012SE06447

PATIENT
  Age: 67 Year
  Sex: Female

DRUGS (2)
  1. HYDROCHLOROTHIAZIDE [Concomitant]
  2. LISINOPRIL [Suspect]
     Route: 048
     Dates: start: 20050101

REACTIONS (7)
  - INFLAMMATORY BOWEL DISEASE [None]
  - COLONIC POLYP [None]
  - ENTERITIS INFECTIOUS [None]
  - GASTROENTERITIS EOSINOPHILIC [None]
  - COELIAC DISEASE [None]
  - SMALL BOWEL ANGIOEDEMA [None]
  - ASCITES [None]
